FAERS Safety Report 16903635 (Version 1)
Quarter: 2019Q4

REPORT INFORMATION
  Report Type: Spontaneous
  Country: US (occurrence: US)
  Receive Date: 20190819
  Receipt Date: 20190819
  Transmission Date: 20200122
  Serious: Yes (Death)
  Sender: FDA-Public Use
  Company Number: None

PATIENT
  Age: 59 Year
  Sex: Male

DRUGS (2)
  1. AFINITOR [Suspect]
     Active Substance: EVEROLIMUS
     Route: 048
  2. LENVIMA [Concomitant]
     Active Substance: LENVATINIB

REACTIONS (1)
  - Death [None]

NARRATIVE: CASE EVENT DATE: 20190719
